FAERS Safety Report 22114986 (Version 5)
Quarter: 2023Q2

REPORT INFORMATION
  Report Type: Spontaneous
  Country: US (occurrence: US)
  Receive Date: 20230320
  Receipt Date: 20230614
  Transmission Date: 20230721
  Serious: Yes (Death, Hospitalization)
  Sender: FDA-Public Use
  Company Number: US-BIOGEN-2023BI01194313

PATIENT
  Sex: Male

DRUGS (2)
  1. SPINRAZA [Suspect]
     Active Substance: NUSINERSEN
     Indication: Spinal muscular atrophy
     Route: 050
     Dates: start: 20180130
  2. SPINRAZA [Suspect]
     Active Substance: NUSINERSEN
     Route: 050
     Dates: start: 2017

REACTIONS (3)
  - Pneumonia [Fatal]
  - Sepsis [Fatal]
  - COVID-19 [Not Recovered/Not Resolved]
